FAERS Safety Report 5258793-X (Version None)
Quarter: 2007Q1

REPORT INFORMATION
  Report Type: 
  Country: None (occurrence: None)
  Receive Date: 20070306
  Receipt Date: 20070306
  Transmission Date: 20070707
  Serious: No
  Sender: FDA-Public Use
  Company Number: None

PATIENT
  Age: 64 Year
  Sex: Female
  Weight: 68.0396 kg

DRUGS (1)
  1. PEG-3350 + ELECTORLYTES + ELECTROLYTES KREMERS URBAN, LLC [Suspect]
     Indication: COLONOSCOPY
     Dosage: 4 LITERS 8 OZ EVERY 10 MIN PO
     Route: 048
     Dates: start: 20070305, end: 20070305

REACTIONS (1)
  - URTICARIA GENERALISED [None]
